FAERS Safety Report 9509527 (Version 1)
Quarter: 2013Q3

REPORT INFORMATION
  Report Type: Spontaneous
  Country: US (occurrence: US)
  Receive Date: 20130909
  Receipt Date: 20130909
  Transmission Date: 20140515
  Serious: No
  Sender: FDA-Public Use
  Company Number: US-BRISTOL-MYERS SQUIBB COMPANY-17267766

PATIENT
  Age: 49 Year
  Sex: Female

DRUGS (2)
  1. ABILIFY [Suspect]
     Dates: start: 20121220
  2. PAXIL [Concomitant]

REACTIONS (2)
  - Migraine [Unknown]
  - Vision blurred [Unknown]
